FAERS Safety Report 20482521 (Version 4)
Quarter: 2022Q2

REPORT INFORMATION
  Report Type: Spontaneous
  Country: MX (occurrence: MX)
  Receive Date: 20220217
  Receipt Date: 20220511
  Transmission Date: 20220721
  Serious: Yes (Hospitalization)
  Sender: FDA-Public Use
  Company Number: MX-MLMSERVICE-20220207-3360583-1

PATIENT
  Age: 52 Year
  Sex: Male

DRUGS (1)
  1. METFORMIN [Suspect]
     Active Substance: METFORMIN HYDROCHLORIDE
     Indication: Product used for unknown indication
     Dosage: 20 TABLETS OF METFORMIN 850 MG
     Route: 048

REACTIONS (5)
  - Toxicity to various agents [Recovering/Resolving]
  - Metabolic acidosis [Recovered/Resolved]
  - Suicide attempt [Unknown]
  - Lactic acidosis [Recovering/Resolving]
  - Intentional overdose [Unknown]
